FAERS Safety Report 5675120-4 (Version None)
Quarter: 2008Q1

REPORT INFORMATION
  Report Type: 
  Country: None (occurrence: None)
  Receive Date: 20080320
  Receipt Date: 20080312
  Transmission Date: 20080703
  Serious: Yes (Disabling)
  Sender: FDA-Public Use
  Company Number: DE-ROCHE-483644

PATIENT
  Age: 66 Year
  Sex: Female
  Weight: 77.5 kg

DRUGS (6)
  1. CAPECITABINE [Suspect]
     Indication: BREAST CANCER
     Dosage: DIVIDED INTO TWO DAILY DOSES AND GIVEN ON DAYS ONE TO 14 OF EACH 21-DAY-CYCLE.
     Route: 048
     Dates: start: 20070205, end: 20070212
  2. CAPECITABINE [Suspect]
     Dosage: GIVEN ON DAY 1-14 EVERY 21 DAYS.
     Route: 048
     Dates: start: 20070226
  3. DOCETAXEL [Suspect]
     Indication: BREAST CANCER
     Dosage: GIVEN ON DAY ONE OF EACH 21-DAY-CYCLE. FORM: INFUSION.
     Route: 042
     Dates: start: 20070205
  4. DOCETAXEL [Suspect]
     Dosage: GIVEN ON DAY 1 EVERY 21 DAYS.
     Route: 042
     Dates: start: 20070226
  5. EPIRUBICIN [Suspect]
     Indication: BREAST CANCER
     Dosage: GIVEN ON DAY ONE OF EACH 21-DAY-CYCLE FOR TOTALLY FOUR CYCLES.
     Route: 065
  6. CYCLOPHOSPHAMIDE [Suspect]
     Indication: BREAST CANCER
     Dosage: GIVEN ON DAY ONE OF EACH 21-DAY-CYCLE FOR TOTALLY FOUR CYCLES.
     Route: 065

REACTIONS (2)
  - OESOPHAGITIS [None]
  - STOMATITIS [None]
